FAERS Safety Report 8167317-9 (Version None)
Quarter: 2012Q1

REPORT INFORMATION
  Report Type: 
  Country: None (occurrence: None)
  Receive Date: 20120227
  Receipt Date: 20120223
  Transmission Date: 20120608
  Serious: No
  Sender: FDA-Public Use
  Company Number: US-PFIZER INC-2012048903

PATIENT
  Sex: Male
  Weight: 89.8 kg

DRUGS (1)
  1. LIPITOR [Suspect]
     Indication: BLOOD CHOLESTEROL INCREASED
     Dosage: 40 MG, ONCE A DAY
     Route: 048

REACTIONS (5)
  - BACK PAIN [None]
  - ARTHRITIS [None]
  - HYPERTENSION [None]
  - PAIN IN EXTREMITY [None]
  - BLOOD TRIGLYCERIDES INCREASED [None]
